FAERS Safety Report 23844097 (Version 2)
Quarter: 2024Q2

REPORT INFORMATION
  Report Type: Spontaneous
  Country: FR (occurrence: FR)
  Receive Date: 20240510
  Receipt Date: 20240522
  Transmission Date: 20240715
  Serious: Yes (Hospitalization, Other)
  Sender: FDA-Public Use
  Company Number: None

PATIENT
  Age: 57 Year
  Sex: Female
  Weight: 107 kg

DRUGS (9)
  1. KEYTRUDA [Suspect]
     Active Substance: PEMBROLIZUMAB
     Indication: Breast cancer
     Dosage: 1 DOSAGE FORM, ONCE
     Route: 042
     Dates: start: 20230803, end: 20230803
  2. KEYTRUDA [Suspect]
     Active Substance: PEMBROLIZUMAB
     Dosage: 1 DOSAGE FORM, ONCE
     Route: 042
     Dates: start: 20230810, end: 20230810
  3. AMIKACIN [Suspect]
     Active Substance: AMIKACIN
     Indication: Sepsis
     Dosage: 2.5 GRAM, ONCE
     Route: 042
     Dates: start: 20230823, end: 20230823
  4. AMIKACIN [Suspect]
     Active Substance: AMIKACIN
     Dosage: 2.5 GRAM, ONCE
     Route: 042
     Dates: start: 20230825, end: 20230825
  5. PIPERACILLIN SODIUM\TAZOBACTAM SODIUM [Suspect]
     Active Substance: PIPERACILLIN SODIUM\TAZOBACTAM SODIUM
     Indication: Sepsis
     Dosage: 4 GRAM, Q8H
     Route: 042
     Dates: start: 20230823, end: 20230825
  6. PIPERACILLIN SODIUM\TAZOBACTAM SODIUM [Suspect]
     Active Substance: PIPERACILLIN SODIUM\TAZOBACTAM SODIUM
     Dosage: 4 GRAM, Q8H
     Route: 042
     Dates: start: 20230901, end: 20230912
  7. GENTAMICIN [Suspect]
     Active Substance: GENTAMICIN
     Indication: Sepsis
     Dosage: 400 MILLIGRAM, QD
     Route: 042
     Dates: start: 20230823, end: 20230824
  8. GENTAMICIN [Suspect]
     Active Substance: GENTAMICIN
     Dosage: 400 MILLIGRAM, QD
     Route: 042
     Dates: start: 20230826, end: 20230826
  9. GENTAMICIN [Suspect]
     Active Substance: GENTAMICIN
     Dosage: 400 MILLIGRAM, QD
     Route: 042
     Dates: start: 20230829, end: 20230831

REACTIONS (2)
  - Tubulointerstitial nephritis [Recovering/Resolving]
  - Acute kidney injury [Recovering/Resolving]

NARRATIVE: CASE EVENT DATE: 20230911
